FAERS Safety Report 12924073 (Version 1)
Quarter: 2016Q4

REPORT INFORMATION
  Report Type: Spontaneous
  Country: US (occurrence: US)
  Receive Date: 20161109
  Receipt Date: 20161109
  Transmission Date: 20170207
  Serious: Yes (Other)
  Sender: FDA-Public Use
  Company Number: US-PFIZER INC-2016512681

PATIENT
  Sex: Female

DRUGS (1)
  1. XELJANZ XR [Suspect]
     Active Substance: TOFACITINIB CITRATE
     Dosage: 11 MG, UNK

REACTIONS (21)
  - Sjogren^s syndrome [Recovering/Resolving]
  - Musculoskeletal stiffness [Recovering/Resolving]
  - Nuchal rigidity [Unknown]
  - Chills [Recovering/Resolving]
  - Peripheral swelling [Unknown]
  - Flushing [Recovering/Resolving]
  - Alopecia [Recovering/Resolving]
  - Poor quality sleep [Unknown]
  - Lymphadenopathy [Unknown]
  - Pharyngitis streptococcal [Recovered/Resolved]
  - Back pain [Unknown]
  - Asthenia [Unknown]
  - Fatigue [Recovering/Resolving]
  - Musculoskeletal discomfort [Unknown]
  - Sleep disorder [Unknown]
  - Headache [Unknown]
  - Peripheral swelling [Recovering/Resolving]
  - Dry mouth [Unknown]
  - Oropharyngeal pain [Recovering/Resolving]
  - Arthralgia [Unknown]
  - Skin erosion [Unknown]
